FAERS Safety Report 11935691 (Version 1)
Quarter: 2016Q1

REPORT INFORMATION
  Report Type: Spontaneous
  Country: US (occurrence: US)
  Receive Date: 20160121
  Receipt Date: 20160121
  Transmission Date: 20160526
  Serious: Yes (Hospitalization, Other)
  Sender: FDA-Public Use
  Company Number: PHEH2016US000996

PATIENT
  Age: 59 Year
  Sex: Female
  Weight: 59.41 kg

DRUGS (6)
  1. KYTRIL [Concomitant]
     Active Substance: GRANISETRON HYDROCHLORIDE
     Indication: NAUSEA
     Dosage: 1 MG, PRN
     Route: 048
     Dates: start: 201503
  2. FEMARA [Suspect]
     Active Substance: LETROZOLE
     Indication: BREAST CANCER
     Dosage: 2.5 MG, QD
     Route: 048
     Dates: start: 20141114, end: 20150126
  3. OXYCODONE [Concomitant]
     Active Substance: OXYCODONE
     Indication: PAIN
     Dosage: 5 MG, PRN
     Route: 048
     Dates: start: 201112
  4. WELCHOL [Concomitant]
     Active Substance: COLESEVELAM HYDROCHLORIDE
     Indication: HYPERCHOLESTEROLAEMIA
     Dosage: 625 MG, QD
     Route: 048
     Dates: start: 201307
  5. AZITHROMYCIN ANHYDROUS. [Concomitant]
     Active Substance: AZITHROMYCIN ANHYDROUS
     Indication: PRODUCT USED FOR UNKNOWN INDICATION
     Route: 065
  6. PALBOCICLIB [Suspect]
     Active Substance: PALBOCICLIB
     Indication: BREAST CANCER
     Dosage: 125 MG ONCE DAILY 3 WEEKS ON/1 WEEK OFF
     Route: 048
     Dates: start: 20141114, end: 20150111

REACTIONS (8)
  - Pyrexia [Unknown]
  - Metastases to liver [Unknown]
  - Abdominal pain [Unknown]
  - Ascites [Recovered/Resolved]
  - Hepatic function abnormal [Unknown]
  - Clostridium difficile colitis [Recovered/Resolved with Sequelae]
  - Malignant neoplasm progression [Unknown]
  - Gastrointestinal toxicity [Unknown]

NARRATIVE: CASE EVENT DATE: 20150128
